FAERS Safety Report 5267075-1 (Version None)
Quarter: 2007Q1

REPORT INFORMATION
  Report Type: 
  Country: None (occurrence: None)
  Receive Date: 20061213
  Receipt Date: 20021217
  Transmission Date: 20070707
  Serious: No
  Sender: FDA-Public Use
  Company Number: 2002UW17092

PATIENT
  Age: 68 Year
  Sex: Female
  Weight: 70.3075 kg

DRUGS (6)
  1. TAMOXIFEN CITRATE [Suspect]
     Indication: BREAST CANCER
     Dosage: 20 MG QD PO
     Route: 048
     Dates: start: 20000301, end: 20020301
  2. TAMOXIFEN CITRATE [Suspect]
     Indication: BREAST CANCER
     Dosage: 20 MG QD PO
     Route: 048
  3. CELEBREX [Concomitant]
  4. ASPIRIN [Concomitant]
  5. VITAMIN E [Concomitant]
  6. MULTI-VITAMIN [Concomitant]

REACTIONS (2)
  - ENDOMETRIAL HYPERTROPHY [None]
  - NAUSEA [None]
